FAERS Safety Report 5123184-9 (Version None)
Quarter: 2006Q4

REPORT INFORMATION
  Report Type: 
  Country: None (occurrence: None)
  Receive Date: 20061005
  Receipt Date: 20060929
  Transmission Date: 20070319
  Serious: Yes (Other)
  Sender: FDA-Public Use
  Company Number: 2006-05163

PATIENT
  Sex: Female

DRUGS (3)
  1. TRELSTAR DEPOT [Suspect]
     Indication: IN VITRO FERTILISATION
     Dosage: 3 MG, X 4 WITHIN LAST 2-3 YEARS, INTRAMUSCULAR
     Route: 030
     Dates: start: 20030101, end: 20050101
  2. MENOPUR [Concomitant]
  3. PUREGON                   (FOLLITROPIN BETA) [Concomitant]

REACTIONS (4)
  - DEMYELINATION [None]
  - HYPERAESTHESIA [None]
  - MULTIPLE SCLEROSIS [None]
  - MYELITIS [None]
